FAERS Safety Report 4342026-2 (Version None)
Quarter: 2004Q2

REPORT INFORMATION
  Report Type: 
  Country: None (occurrence: None)
  Receive Date: 20040415
  Receipt Date: 20040401
  Transmission Date: 20050107
  Serious: Yes (Other)
  Sender: FDA-Public Use
  Company Number: 200411463BCC

PATIENT
  Age: 96 Year
  Sex: Female
  Weight: 39.9165 kg

DRUGS (6)
  1. MILK OF MAGNESIA TAB [Suspect]
     Indication: CONSTIPATION
     Dosage: 5 ML, ONCE, ORAL
     Route: 048
     Dates: start: 20040318
  2. SYNTHROID [Concomitant]
  3. LASIX [Concomitant]
  4. ZOLOFT [Concomitant]
  5. BACTRIM [Concomitant]
  6. METAMUCIL-2 [Concomitant]

REACTIONS (1)
  - RECTAL HAEMORRHAGE [None]
